FAERS Safety Report 6010069-9 (Version None)
Quarter: 2008Q4

REPORT INFORMATION
  Report Type: 
  Country: None (occurrence: None)
  Receive Date: 20081216
  Receipt Date: 20081201
  Transmission Date: 20090506
  Serious: Yes (Death)
  Sender: FDA-Public Use
  Company Number: KV200800654

PATIENT
  Age: 81 Year
  Sex: Female

DRUGS (2)
  1. ISOSORBIDE MONONITRATE [Suspect]
     Indication: CARDIAC DISORDER
     Dosage: 30 MG, QD, ORAL
     Route: 048
     Dates: start: 19991201, end: 20080814
  2. DIGOXIN [Concomitant]

REACTIONS (5)
  - CARDIAC FAILURE CONGESTIVE [None]
  - DISEASE PROGRESSION [None]
  - DIZZINESS POSTURAL [None]
  - HYPOTENSION [None]
  - PRODUCT QUALITY ISSUE [None]
